FAERS Safety Report 16558856 (Version 1)
Quarter: 2020Q3

REPORT INFORMATION
  Report Type: Spontaneous
  Country: US (occurrence: US)
  Receive Date: 20190710
  Receipt Date: 20190710
  Transmission Date: 20201104
  Serious: Yes (Other)
  Sender: FDA-Public Use
  Company Number: None

PATIENT
  Age: 25 Year
  Sex: Female
  Weight: 69.3 kg

DRUGS (5)
  1. WELLBUTRIN [Suspect]
     Active Substance: BUPROPION HYDROCHLORIDE
  2. BIRTH CONTROL [Concomitant]
     Active Substance: UNSPECIFIED INGREDIENT
  3. CEPHALEXIN. [Concomitant]
     Active Substance: CEPHALEXIN
  4. IBUPROFEN. [Concomitant]
     Active Substance: IBUPROFEN
  5. PHENAZOPYRIDINE. [Suspect]
     Active Substance: PHENAZOPYRIDINE
     Indication: URINARY TRACT PAIN
     Dosage: ?          QUANTITY:1 TABLET(S);?
     Route: 048
     Dates: start: 20190709, end: 20190710

REACTIONS (6)
  - Migraine [None]
  - Diarrhoea [None]
  - Nausea [None]
  - Chills [None]
  - Vomiting [None]
  - Cold sweat [None]

NARRATIVE: CASE EVENT DATE: 20190710
